FAERS Safety Report 9626928 (Version 2)
Quarter: 2013Q4

REPORT INFORMATION
  Report Type: Spontaneous
  Country: US (occurrence: None)
  Receive Date: 20131011
  Receipt Date: 20131030
  Transmission Date: 20140711
  Serious: Yes (Death)
  Sender: FDA-Public Use
  Company Number: UTC-038942

PATIENT
  Age: 76 Year
  Sex: Female
  Weight: 47.7 kg

DRUGS (3)
  1. TYVASO [Suspect]
     Indication: COR PULMONALE CHRONIC
     Dosage: 18-54 MCGS (4 IN 1 D)
     Route: 055
     Dates: start: 20130917
  2. LETAIRIS [Suspect]
     Indication: PRODUCT USED FOR UNKNOWN INDICATION
  3. ADCIRCA (TADALAFIL) (UNKNOWN) [Concomitant]

REACTIONS (5)
  - Hepatic failure [None]
  - Renal failure [None]
  - Unevaluable event [None]
  - Pneumonia [None]
  - Hepatic function abnormal [None]
